FAERS Safety Report 7166875 (Version 2)
Quarter: 2012Q4

REPORT INFORMATION
  Report Type: 
  Country: JP (occurrence: JP)
  Receive Date: 20091104
  Receipt Date: 20121121
  Transmission Date: 20130627
  Serious: Yes (Death, Other)
  Sender: FDA-Public Use
  Company Number: JP-PFIZER INC-2009288136

PATIENT
  Age: 85 Year
  Sex: Male

DRUGS (4)
  1. ADRIACIN [Suspect]
     Indication: MALIGNANT LYMPHOMA
     Dosage: 35 mg/m2,  IJ
  2. ONCOVIN [Suspect]
     Indication: MALIGNANT LYMPHOMA
     Dosage: 2 mg, IJ
  3. ENDOXAN [Concomitant]
     Dosage: 525 mg/m2, IJ
  4. PREDNISOLONE [Concomitant]
     Dosage: 100 mg, UNK
     Route: 048

REACTIONS (8)
  - Hypovolaemic shock [Fatal]
  - Ileus paralytic [Unknown]
  - Melaena [Unknown]
  - Haematochezia [Unknown]
  - Hepatic failure [Unknown]
  - Febrile neutropenia [Unknown]
  - Impaired gastric emptying [Unknown]
  - Mucosal erosion [Not Recovered/Not Resolved]
